FAERS Safety Report 5707668-8 (Version None)
Quarter: 2008Q2

REPORT INFORMATION
  Report Type: 
  Country: None (occurrence: None)
  Receive Date: 20080416
  Receipt Date: 20080404
  Transmission Date: 20081010
  Serious: Yes (Other)
  Sender: FDA-Public Use
  Company Number: US-PFIZER INC-2008031004

PATIENT
  Sex: Male
  Weight: 95 kg

DRUGS (9)
  1. CHANTIX [Suspect]
     Indication: SMOKING CESSATION THERAPY
     Dates: start: 20080225, end: 20080403
  2. PREDNISONE [Suspect]
  3. ATIVAN [Suspect]
  4. CARTIA XT [Suspect]
  5. OXYCONTIN [Concomitant]
     Indication: BACK PAIN
  6. PERCOCET [Concomitant]
     Indication: BACK PAIN
  7. LORAZEPAM [Concomitant]
  8. PLAVIX [Concomitant]
  9. NEURONTIN [Concomitant]

REACTIONS (4)
  - ANXIETY [None]
  - DYSPNOEA [None]
  - HEART RATE INCREASED [None]
  - HYPERTENSION [None]
